FAERS Safety Report 16070950 (Version 1)
Quarter: 2019Q1

REPORT INFORMATION
  Report Type: Spontaneous
  Country: IT (occurrence: IT)
  Receive Date: 20190314
  Receipt Date: 20190314
  Transmission Date: 20190418
  Serious: Yes (Other)
  Sender: FDA-Public Use
  Company Number: IT-SA-2019SA065289

PATIENT

DRUGS (3)
  1. ACETYLSALICYLIC ACID [Suspect]
     Active Substance: ASPIRIN
     Indication: MATERNAL EXPOSURE DURING PREGNANCY
     Dosage: 100 MG, UNK
     Route: 065
  2. HUMAN IMMUNOGLOBULIN [Suspect]
     Active Substance: HUMAN IMMUNOGLOBULIN G
     Indication: MATERNAL EXPOSURE DURING PREGNANCY
     Dosage: 1000 MG/KG, QOW
     Route: 042
  3. ENOXAPARIN SODIUM. [Suspect]
     Active Substance: ENOXAPARIN SODIUM
     Indication: MATERNAL EXPOSURE DURING PREGNANCY
     Dosage: 100 IU/KG, BID
     Route: 065

REACTIONS (2)
  - Foetal exposure during pregnancy [Unknown]
  - Respiratory distress [Recovered/Resolved]
